FAERS Safety Report 5003815-4 (Version None)
Quarter: 2006Q2

REPORT INFORMATION
  Report Type: 
  Country: None (occurrence: None)
  Receive Date: 20060515
  Receipt Date: 20060504
  Transmission Date: 20061013
  Serious: Yes (Other)
  Sender: FDA-Public Use
  Company Number: 2006060454

PATIENT
  Age: 81 Year
  Sex: Male

DRUGS (1)
  1. ALPRESS (PRAZOSIN) [Suspect]
     Indication: HYPERTENSION
     Dosage: 5 MG (5 MG, DAILY) ORAL
     Route: 048

REACTIONS (1)
  - BLOOD PRESSURE INCREASED [None]
